FAERS Safety Report 5268046-1 (Version None)
Quarter: 2007Q1

REPORT INFORMATION
  Report Type: 
  Country: None (occurrence: None)
  Receive Date: 20070314
  Receipt Date: 20070314
  Transmission Date: 20070707
  Serious: Yes (Other)
  Sender: FDA-Public Use
  Company Number: None

PATIENT
  Age: 4 Year
  Sex: Female
  Weight: 16.3295 kg

DRUGS (1)
  1. TUBERSOL [Suspect]
     Indication: TUBERCULIN TEST
     Dosage: .1 ML  1  ID
     Route: 023
     Dates: start: 20070130, end: 20070130

REACTIONS (6)
  - DRUG HYPERSENSITIVITY [None]
  - FALSE POSITIVE TUBERCULOSIS TEST [None]
  - INJECTION SITE INDURATION [None]
  - LIP SWELLING [None]
  - URTICARIA GENERALISED [None]
  - VOMITING [None]
